FAERS Safety Report 8909308 (Version 2)
Quarter: 2012Q4

REPORT INFORMATION
  Report Type: Report from Study
  Country: CH (occurrence: CH)
  Receive Date: 20121115
  Receipt Date: 20121126
  Transmission Date: 20130627
  Serious: Yes (Death, Other)
  Sender: FDA-Public Use
  Company Number: CH-CELGENEUS-151-21660-12111270

PATIENT
  Age: 74 Year
  Sex: Male

DRUGS (3)
  1. ABRAXANE [Suspect]
     Indication: PANCREATIC CARCINOMA METASTATIC
     Route: 065
     Dates: start: 20120626
  2. GEMCITABINE [Suspect]
     Indication: PANCREATIC CARCINOMA METASTATIC
     Route: 065
  3. FRAGMIN [Concomitant]
     Indication: EMBOLISM LUNG
     Route: 065

REACTIONS (2)
  - Gastrointestinal haemorrhage [Fatal]
  - Pulmonary toxicity [Unknown]
